FAERS Safety Report 9632699 (Version 1)
Quarter: 2013Q4

REPORT INFORMATION
  Report Type: Spontaneous
  Country: US (occurrence: US)
  Receive Date: 20131018
  Receipt Date: 20131018
  Transmission Date: 20140711
  Serious: No
  Sender: FDA-Public Use
  Company Number: US-PFIZER INC-2013299528

PATIENT
  Age: 40 Year
  Sex: Male
  Weight: 149.66 kg

DRUGS (2)
  1. GEODON [Suspect]
     Indication: SCHIZOAFFECTIVE DISORDER
     Dosage: 60 MG, 1X/DAY
     Route: 048
     Dates: start: 201309, end: 2013
  2. GEODON [Suspect]
     Dosage: 240 MG, 1X/DAY
     Route: 048
     Dates: start: 2013

REACTIONS (1)
  - Sedation [Unknown]
